FAERS Safety Report 9831149 (Version 2)
Quarter: 2014Q1

REPORT INFORMATION
  Report Type: Report from Study
  Country: CA (occurrence: CA)
  Receive Date: 20140121
  Receipt Date: 20140129
  Transmission Date: 20141002
  Serious: Yes (Life-Threatening, Hospitalization)
  Sender: FDA-Public Use
  Company Number: CA-ROCHE-1336032

PATIENT
  Age: 57 Year
  Sex: Male

DRUGS (3)
  1. RANIBIZUMAB [Suspect]
     Indication: DIABETIC RETINAL OEDEMA
     Dosage: RECENT DOSE OF RANIBIZUMAB ON 22 JAN 2014
     Route: 050
     Dates: start: 20131209
  2. METFORMIN [Concomitant]
     Route: 065
  3. GLYBURIDE [Concomitant]

REACTIONS (4)
  - Myocardial infarction [Recovering/Resolving]
  - Angina pectoris [Recovering/Resolving]
  - Parosmia [Recovering/Resolving]
  - Pain in extremity [Recovering/Resolving]
